FAERS Safety Report 5502468-6 (Version None)
Quarter: 2007Q4

REPORT INFORMATION
  Report Type: 
  Country: None (occurrence: None)
  Receive Date: 20071030
  Receipt Date: 20071018
  Transmission Date: 20080405
  Serious: Yes (Hospitalization, Other)
  Sender: FDA-Public Use
  Company Number: US-PFIZER INC-2007087607

PATIENT
  Sex: Female
  Weight: 81.818 kg

DRUGS (1)
  1. CHANTIX [Suspect]
     Dates: start: 20070930, end: 20071001

REACTIONS (7)
  - ABNORMAL DREAMS [None]
  - BLOOD TEST ABNORMAL [None]
  - DIVERTICULITIS [None]
  - FLATULENCE [None]
  - NAUSEA [None]
  - PANCREATITIS [None]
  - STOMACH DISCOMFORT [None]
